FAERS Safety Report 17267903 (Version 8)
Quarter: 2022Q3

REPORT INFORMATION
  Report Type: Spontaneous
  Country: US (occurrence: US)
  Receive Date: 20200114
  Receipt Date: 20220804
  Transmission Date: 20221027
  Serious: No
  Sender: FDA-Public Use
  Company Number: US-PFIZER INC-2019313339

PATIENT
  Age: 83 Year
  Sex: Male
  Weight: 70 kg

DRUGS (5)
  1. INLYTA [Suspect]
     Active Substance: AXITINIB
     Indication: Renal cancer metastatic
     Dosage: 5 MG, 1X/DAY
     Route: 048
     Dates: start: 201905
  2. INLYTA [Suspect]
     Active Substance: AXITINIB
     Dosage: 5 MG, CYCLIC (EVERY 21 DAYS X 12 CYCLES)
  3. INLYTA [Suspect]
     Active Substance: AXITINIB
     Dosage: EVERYDAY, NO OFF PERIODS
     Route: 048
  4. INLYTA [Suspect]
     Active Substance: AXITINIB
     Dosage: TAKE ONE (1) TABLET BY MOUTH ONCE DAILY WITH OR WITHOUT FOOD
     Route: 048
  5. PREDNISONE [Concomitant]
     Active Substance: PREDNISONE
     Dosage: 5 MG, 1X/DAY

REACTIONS (3)
  - Off label use [Unknown]
  - Hypoacusis [Unknown]
  - Peripheral swelling [Unknown]
